FAERS Safety Report 9363585 (Version 2)
Quarter: 2013Q3

REPORT INFORMATION
  Report Type: Spontaneous
  Country: JP (occurrence: JP)
  Receive Date: 20130624
  Receipt Date: 20130903
  Transmission Date: 20140515
  Serious: Yes (Other)
  Sender: FDA-Public Use
  Company Number: PHHY2012JP118445

PATIENT
  Age: 77 Year
  Sex: Male

DRUGS (4)
  1. EXELON PATCH [Suspect]
     Indication: DEMENTIA ALZHEIMER^S TYPE
     Dosage: 4.5 MG, DAILY
     Route: 062
     Dates: start: 20121203, end: 20121213
  2. EXELON PATCH [Suspect]
     Dosage: 2.25 MG, DAILY
     Route: 062
     Dates: start: 20121214, end: 20121219
  3. EXELON PATCH [Suspect]
     Dosage: 4.5 MG, DAILY
     Route: 062
     Dates: start: 20121220, end: 20130102
  4. EXELON PATCH [Suspect]
     Dosage: 9 MG, DAILY
     Route: 062
     Dates: start: 20130103, end: 20130223

REACTIONS (5)
  - Ileus [Recovering/Resolving]
  - Infrequent bowel movements [Recovering/Resolving]
  - Faecaloma [Recovering/Resolving]
  - Dizziness [Recovering/Resolving]
  - Nausea [Recovering/Resolving]
